FAERS Safety Report 5873672-2 (Version None)
Quarter: 2008Q3

REPORT INFORMATION
  Report Type: 
  Country: None (occurrence: None)
  Receive Date: 20080908
  Receipt Date: 20080903
  Transmission Date: 20090109
  Serious: Yes (Death, Hospitalization)
  Sender: FDA-Public Use
  Company Number: A0746245A

PATIENT
  Age: 59 Year
  Sex: Male
  Weight: 43 kg

DRUGS (2)
  1. SERETIDE [Suspect]
     Indication: LUNG NEOPLASM
     Route: 055
     Dates: start: 20070601, end: 20071124
  2. ASPIRIN [Concomitant]
     Dosage: 2TABS TWICE PER DAY
     Route: 048
     Dates: start: 20030101, end: 20071124

REACTIONS (3)
  - LUNG NEOPLASM [None]
  - NEOPLASM [None]
  - OFF LABEL USE [None]
